FAERS Safety Report 7402500-9 (Version None)
Quarter: 2011Q2

REPORT INFORMATION
  Report Type: 
  Country: None (occurrence: None)
  Receive Date: 20110408
  Receipt Date: 20110404
  Transmission Date: 20111010
  Serious: Yes (Death)
  Sender: FDA-Public Use
  Company Number: PHHY2011US25832

PATIENT
  Sex: Female
  Weight: 129 kg

DRUGS (8)
  1. ZINC [Concomitant]
     Dosage: 50 MG
     Route: 048
  2. HYDROXYUREA [Concomitant]
     Dosage: 500 MG, UNK
  3. ATENOLOL [Concomitant]
     Dosage: 25 MG,
     Route: 048
  4. FOLIC ACID [Concomitant]
  5. EXJADE [Suspect]
     Dosage: 2000 MG/ DAY
     Route: 048
  6. ZOLOFT [Concomitant]
     Dosage: 100 MG, UNK
  7. PENICILLIN VK [Concomitant]
     Dosage: 500 MG, UNK
  8. ABILIFY [Concomitant]
     Dosage: 10 MG,

REACTIONS (1)
  - DEATH [None]
